FAERS Safety Report 8047159-5 (Version None)
Quarter: 2012Q1

REPORT INFORMATION
  Report Type: 
  Country: None (occurrence: None)
  Receive Date: 20120116
  Receipt Date: 20120110
  Transmission Date: 20120608
  Serious: Yes (Hospitalization)
  Sender: FDA-Public Use
  Company Number: US-AMGEN-USACT2011061016

PATIENT
  Age: 57 Year
  Sex: Male

DRUGS (17)
  1. CHLORHEXIDINE GLUCONATE [Concomitant]
     Indication: STOMATITIS
     Dosage: 30 ML, UNK
     Route: 050
  2. PROCHLORPERAZINE [Concomitant]
     Indication: NAUSEA
     Dosage: 10 MG, Q6H
  3. METOPROLOL TARTRATE [Concomitant]
     Dosage: 50 MG, UNK
     Route: 048
  4. ONDASETRON [Concomitant]
     Indication: NAUSEA
     Dosage: 8 MG, Q8H
  5. PROCHLORPERAZINE [Concomitant]
     Indication: VOMITING
  6. BENICAR [Concomitant]
  7. OXALIPLATIN [Concomitant]
     Dosage: 130 MG/M2, UNK
     Route: 042
     Dates: start: 20111110
  8. MINOCYCLINE HCL [Concomitant]
     Dosage: 100 MG, QD
     Route: 048
  9. ONDASETRON [Concomitant]
     Indication: VOMITING
  10. DEXAMETHASONE [Concomitant]
     Dosage: 4 MG, UNK
     Route: 048
  11. IMODIUM [Concomitant]
     Indication: DIARRHOEA
     Dosage: 2 MG, PRN
     Route: 048
  12. CLEOCIN HYDROCHLORIDE [Concomitant]
     Indication: RASH
     Dosage: UNK UNK, BID
  13. IBUPROFEN [Concomitant]
     Indication: PAIN
     Dosage: UNK UNK, PRN
  14. LOMOTIL [Concomitant]
     Indication: DIARRHOEA
     Dosage: UNK UNK, Q6H
     Route: 048
  15. PANITUMUMAB [Suspect]
     Indication: SMALL INTESTINE CARCINOMA METASTATIC
     Dosage: 9 MG/KG, UNK
     Route: 042
     Dates: start: 20111110
  16. XELODA [Concomitant]
     Dosage: 1500 MG/M2, BID
     Route: 042
     Dates: start: 20111110
  17. ACETAMINOPHEN [Concomitant]
     Indication: PAIN
     Dosage: UNK UNK, PRN

REACTIONS (2)
  - SYNCOPE [None]
  - DEHYDRATION [None]
